FAERS Safety Report 4908550-6 (Version None)
Quarter: 2006Q1

REPORT INFORMATION
  Report Type: 
  Country: None (occurrence: None)
  Receive Date: 20060210
  Receipt Date: 20050824
  Transmission Date: 20060701
  Serious: No
  Sender: FDA-Public Use
  Company Number: US-GLAXOSMITHKLINE-A0571654A

PATIENT
  Age: 36 Year
  Sex: Male

DRUGS (3)
  1. PAXIL CR [Suspect]
     Dosage: 25MG PER DAY
     Route: 048
  2. GEMFIBROZIL [Concomitant]
  3. OMEPRAZOLE [Concomitant]

REACTIONS (1)
  - TINNITUS [None]
